FAERS Safety Report 9887778 (Version 2)
Quarter: 2014Q3

REPORT INFORMATION
  Report Type: Spontaneous
  Country: US (occurrence: US)
  Receive Date: 20140211
  Receipt Date: 20140710
  Transmission Date: 20150326
  Serious: Yes (Hospitalization, Other)
  Sender: FDA-Public Use
  Company Number: US-009507513-1402USA004318

PATIENT
  Sex: Female

DRUGS (1)
  1. NUVARING [Suspect]
     Active Substance: ETHINYL ESTRADIOL\ETONOGESTREL
     Indication: CONTRACEPTION
     Dosage: UNK
     Route: 067
     Dates: end: 201211

REACTIONS (16)
  - Pulmonary embolism [Unknown]
  - Deep vein thrombosis [Unknown]
  - Procedural nausea [Recovered/Resolved]
  - Cyanosis [Unknown]
  - Urinary tract infection [Unknown]
  - Ankle fracture [Unknown]
  - Syncope [Unknown]
  - Maternal exposure before pregnancy [Unknown]
  - Pelvic laparoscopy [Unknown]
  - Pelvic laparoscopy [Unknown]
  - Hip arthroplasty [Unknown]
  - Endometriosis [Unknown]
  - Hyponatraemia [Unknown]
  - Tonsillectomy [Unknown]
  - Cholecystectomy [Unknown]
  - Epiphysiolysis [Unknown]

NARRATIVE: CASE EVENT DATE: 201211
